FAERS Safety Report 15260710 (Version 1)
Quarter: 2018Q3

REPORT INFORMATION
  Report Type: Spontaneous
  Country: GB (occurrence: GB)
  Receive Date: 20180809
  Receipt Date: 20180809
  Transmission Date: 20181010
  Serious: Yes (Death)
  Sender: FDA-Public Use
  Company Number: GB-LINDE-GB-LHC-2018189

PATIENT
  Age: 61 Year
  Sex: Male

DRUGS (1)
  1. COMPRESSED MEDICAL OXYGEN [Suspect]
     Active Substance: OXYGEN
     Indication: MECHANICAL VENTILATION
     Route: 055

REACTIONS (3)
  - Accidental underdose [Fatal]
  - Cardiac arrest [Fatal]
  - Drug administration error [Fatal]
